FAERS Safety Report 19028352 (Version 1)
Quarter: 2021Q1

REPORT INFORMATION
  Report Type: Spontaneous
  Country: DE (occurrence: DE)
  Receive Date: 20210319
  Receipt Date: 20210319
  Transmission Date: 20210420
  Serious: Yes (Hospitalization)
  Sender: FDA-Public Use
  Company Number: DE-TEVA-2021-DE-1890930

PATIENT
  Age: 79 Year
  Sex: Male

DRUGS (3)
  1. NEBIVOLOL. [Concomitant]
     Active Substance: NEBIVOLOL
     Dosage: 5 MILLIGRAM DAILY;  1?0?0?0
  2. CANDESARTAN/HYDROCHLOROTHIAZID [Concomitant]
     Active Substance: CANDESARTAN CILEXETIL\HYDROCHLOROTHIAZIDE
     Dosage: 1 DOSAGE FORMS DAILY; 32|12.5 MG, 1?0?0?0
  3. DOCETAXEL. [Suspect]
     Active Substance: DOCETAXEL
     Dosage: FIRST GIFT ON 30?11?2020
     Dates: start: 20201130

REACTIONS (4)
  - Hypotension [Unknown]
  - Presyncope [Unknown]
  - Cold sweat [Unknown]
  - Chest pain [Unknown]

NARRATIVE: CASE EVENT DATE: 20201206
